FAERS Safety Report 8847520 (Version 2)
Quarter: 2013Q2

REPORT INFORMATION
  Report Type: Spontaneous
  Country: CA (occurrence: CA)
  Receive Date: 20121018
  Receipt Date: 20130419
  Transmission Date: 20140414
  Serious: Yes (Other)
  Sender: FDA-Public Use
  Company Number: CA-ELI_LILLY_AND_COMPANY-CA201210001878

PATIENT
  Age: 55 Year
  Sex: Male
  Weight: 90 kg

DRUGS (20)
  1. CYMBALTA [Suspect]
     Indication: FIBROMYALGIA
     Dosage: 60 MG, QD
     Route: 048
     Dates: start: 20110728, end: 20120403
  2. AERIUS [Concomitant]
     Dosage: 1 DF, QD
  3. ASPIRIN [Concomitant]
  4. ATIVAN [Concomitant]
     Dosage: 1 MG, EACH EVENING
  5. BENTYLOL [Concomitant]
     Dosage: 10 MG, EACH MORNING
  6. BRICANYL [Concomitant]
     Dosage: 0.5 MG, UNK
  7. CENTRUM [Concomitant]
  8. CRESTOR [Concomitant]
     Dosage: 10 MG, UNK
     Dates: end: 20130404
  9. DOCUSATE [Concomitant]
     Dosage: 3 DF, QD
  10. DOMPERIDONE [Concomitant]
     Dosage: 2 DF, EACH MORNING
  11. EMPRACET                           /00020001/ [Concomitant]
     Dosage: 30 MG, UNK
  12. MICARDIS [Concomitant]
     Dosage: 80 MG, QD
     Route: 048
  13. NASONEX [Concomitant]
     Dosage: 1 DF, UNK
  14. NEURONTIN [Concomitant]
     Dosage: 300 MG, TID
  15. NEXIUM [Concomitant]
     Dosage: 40 MG, QD
     Route: 048
  16. NORVASC [Concomitant]
     Dosage: 10 MG, UNK
  17. OMEGA 3 [Concomitant]
  18. PULMICORT TURBUHALER [Concomitant]
     Dosage: 200 UNK, UNK
     Route: 055
  19. VITAMIN C [Concomitant]
     Dosage: 500 MG, UNK
  20. Q10 [Concomitant]

REACTIONS (24)
  - Abdominal pain upper [Not Recovered/Not Resolved]
  - Chest pain [Not Recovered/Not Resolved]
  - Dyskinesia [Not Recovered/Not Resolved]
  - Anxiety [Not Recovered/Not Resolved]
  - Arthralgia [Not Recovered/Not Resolved]
  - Blood sodium decreased [Not Recovered/Not Resolved]
  - Chest discomfort [Not Recovered/Not Resolved]
  - Dysuria [Recovering/Resolving]
  - Food craving [Not Recovered/Not Resolved]
  - Hyperhidrosis [Not Recovered/Not Resolved]
  - Impulsive behaviour [Not Recovered/Not Resolved]
  - Insomnia [Not Recovered/Not Resolved]
  - Musculoskeletal chest pain [Not Recovered/Not Resolved]
  - Musculoskeletal pain [Not Recovered/Not Resolved]
  - Nausea [Not Recovered/Not Resolved]
  - Nervousness [Not Recovered/Not Resolved]
  - Pain in extremity [Not Recovered/Not Resolved]
  - Palpitations [Not Recovered/Not Resolved]
  - Photophobia [Not Recovered/Not Resolved]
  - Social avoidant behaviour [Not Recovered/Not Resolved]
  - Blood cholesterol decreased [Unknown]
  - Lethargy [Unknown]
  - Pain [Unknown]
  - Swelling [Unknown]
